FAERS Safety Report 7407216-0 (Version None)
Quarter: 2011Q2

REPORT INFORMATION
  Report Type: 
  Country: None (occurrence: None)
  Receive Date: 20110411
  Receipt Date: 20110329
  Transmission Date: 20111010
  Serious: Yes (Hospitalization, Other)
  Sender: FDA-Public Use
  Company Number: PHEH2008US11470

PATIENT
  Sex: Male
  Weight: 68.027 kg

DRUGS (33)
  1. DECADRON [Concomitant]
     Dosage: 40 MG / WEEKLY
     Route: 048
  2. AUGMENTIN '125' [Concomitant]
     Dosage: UNK / 2 X DAILY
  3. MACRODANTIN [Concomitant]
     Dosage: UNK
  4. CHEMOTHERAPEUTICS NOS [Concomitant]
  5. AUGMENTIN '125' [Concomitant]
     Dosage: UNK
     Route: 048
  6. FLOMAX [Concomitant]
     Dosage: UNK
  7. ZOMETA [Suspect]
     Dosage: UNK
     Dates: start: 20020403, end: 20050101
  8. KEFLEX [Concomitant]
     Dosage: 500 MG
  9. CEFTIN [Concomitant]
     Dosage: UNK
  10. PEN-VEE K [Concomitant]
     Dosage: 500 MG
     Route: 048
  11. KYTRIL [Concomitant]
     Dosage: 1 MG, UNK
  12. AREDIA [Suspect]
     Dosage: UNK / EVERY 3 MONTHS
     Dates: start: 20050101, end: 20060501
  13. DOXYCYCLINE [Concomitant]
     Dosage: UNK
  14. FLAGYL [Concomitant]
     Dosage: 500 MG/ QID
     Route: 048
  15. PENICILLIN ^GRUNENTHAL^ [Concomitant]
     Dosage: UNK
  16. CIPRO [Concomitant]
     Dosage: UNK
  17. FOLIC ACID [Concomitant]
     Dosage: UNK
     Route: 048
  18. PERIOSTAT [Concomitant]
     Dosage: UNK
  19. ZITHROMAX [Concomitant]
     Dosage: UNK
     Route: 048
  20. INDERAL [Concomitant]
     Dosage: UNK
     Route: 048
  21. TOPROL-XL [Concomitant]
     Dosage: UNK
     Route: 048
  22. REVLIMID [Concomitant]
     Dosage: 25 MG / DAILY
  23. CORTICOSTEROID NOS [Concomitant]
     Dosage: UNK
  24. AVODART [Concomitant]
     Dosage: UNK
  25. BACID [Concomitant]
     Dosage: UNK
  26. ASTELIN [Concomitant]
     Dosage: UNK
     Route: 048
  27. ASPIRIN [Concomitant]
     Dosage: UNK
     Route: 048
  28. DOXIL [Concomitant]
     Dosage: 70 MG, UNK
  29. AREDIA [Suspect]
     Dosage: UNK / MONTHLY
     Dates: start: 19970605, end: 20030101
  30. VICODIN [Concomitant]
     Dosage: UNK
  31. BENADRYL ^ACHE^ [Concomitant]
     Dosage: UNK
     Route: 048
  32. ZOCOR [Concomitant]
     Dosage: UNK
     Route: 048
  33. VINCRISTINE [Concomitant]
     Dosage: 2 MG, UNK

REACTIONS (67)
  - OSTEONECROSIS OF JAW [None]
  - PAIN IN JAW [None]
  - GINGIVAL RECESSION [None]
  - TOOTHACHE [None]
  - TOOTH ABSCESS [None]
  - ECZEMA [None]
  - TINNITUS [None]
  - ABDOMINAL PAIN [None]
  - LUNG CONSOLIDATION [None]
  - PERIODONTITIS [None]
  - SINUSITIS [None]
  - WEIGHT DECREASED [None]
  - INFLAMMATION [None]
  - PLEURAL EFFUSION [None]
  - HAEMORRHOIDS [None]
  - INGUINAL HERNIA [None]
  - NEOPLASM MALIGNANT [None]
  - HEADACHE [None]
  - BODY DYSMORPHIC DISORDER [None]
  - EMOTIONAL DISTRESS [None]
  - BONE DENSITY DECREASED [None]
  - ABSCESS [None]
  - PRURITUS [None]
  - LUNG ADENOCARCINOMA STAGE IV [None]
  - POST PROCEDURAL INFECTION [None]
  - SWELLING FACE [None]
  - DIVERTICULUM [None]
  - RASH ERYTHEMATOUS [None]
  - PAIN [None]
  - ORAL DISORDER [None]
  - GINGIVAL ERYTHEMA [None]
  - ORAL CAVITY FISTULA [None]
  - OSTEOPENIA [None]
  - PNEUMONIA [None]
  - DIARRHOEA [None]
  - URINARY RETENTION [None]
  - UROSEPSIS [None]
  - CYST [None]
  - OSTEOMYELITIS [None]
  - BONE DISORDER [None]
  - GINGIVAL SWELLING [None]
  - GINGIVAL ULCERATION [None]
  - COUGH [None]
  - ANAEMIA [None]
  - DYSURIA [None]
  - HAEMATURIA [None]
  - INJURY [None]
  - TOOTH DEPOSIT [None]
  - PURULENT DISCHARGE [None]
  - PYREXIA [None]
  - DENTURE WEARER [None]
  - HYPOAESTHESIA ORAL [None]
  - POLYP [None]
  - PROSTATOMEGALY [None]
  - BLADDER DISORDER [None]
  - URETHRAL STENOSIS [None]
  - INSOMNIA [None]
  - GINGIVAL BLEEDING [None]
  - TOOTH LOSS [None]
  - ANXIETY [None]
  - PHYSICAL DISABILITY [None]
  - LEUKAEMIA [None]
  - ATELECTASIS [None]
  - CHEST PAIN [None]
  - FATIGUE [None]
  - EAR PAIN [None]
  - SPINAL COMPRESSION FRACTURE [None]
